FAERS Safety Report 9255257 (Version 6)
Quarter: 2014Q2

REPORT INFORMATION
  Report Type: Spontaneous
  Country: US (occurrence: US)
  Receive Date: 20130425
  Receipt Date: 20140515
  Transmission Date: 20141212
  Serious: Yes (Hospitalization, Other)
  Sender: FDA-Public Use
  Company Number: US-MERCK-1304USA013415

PATIENT
  Sex: Female
  Weight: 80.27 kg

DRUGS (3)
  1. FOSAMAX [Suspect]
     Indication: OSTEOPOROSIS
     Dosage: 70 MG, UNK
     Route: 048
     Dates: start: 1995
  2. FOSAMAX PLUS D [Suspect]
     Indication: OSTEOPOROSIS
     Dosage: 70 MG, UNK
     Route: 048
     Dates: start: 2006, end: 2007
  3. IRON (UNSPECIFIED) [Concomitant]
     Dosage: UNK
     Dates: start: 1963, end: 2003

REACTIONS (38)
  - Femur fracture [Unknown]
  - Intramedullary rod insertion [Unknown]
  - Blindness [Unknown]
  - Osteonecrosis of jaw [Unknown]
  - Hypertension [Unknown]
  - Low turnover osteopathy [Unknown]
  - Fistula [Unknown]
  - Fall [Unknown]
  - Fistula discharge [Unknown]
  - Gingivitis [Unknown]
  - Oral infection [Unknown]
  - Dental caries [Unknown]
  - Impaired healing [Unknown]
  - Jaw fracture [Unknown]
  - Adverse event [Unknown]
  - Tooth extraction [Unknown]
  - Visual impairment [Unknown]
  - Arthroscopy [Unknown]
  - Temporal arteritis [Unknown]
  - Glaucoma [Unknown]
  - Arthritis [Unknown]
  - Neuropathy peripheral [Unknown]
  - Osteopenia [Unknown]
  - Haemorrhagic anaemia [Recovering/Resolving]
  - Hypokalaemia [Recovered/Resolved]
  - Osteoarthritis [Unknown]
  - Rheumatoid arthritis [Unknown]
  - Neuropathy peripheral [Unknown]
  - Oral infection [Not Recovered/Not Resolved]
  - Fistula [Unknown]
  - Autoimmune disorder [Unknown]
  - Abscess oral [Unknown]
  - Debridement [Unknown]
  - Mouth swelling [Unknown]
  - Osteomyelitis [Unknown]
  - Dizziness [Unknown]
  - Nausea [Unknown]
  - Gastrooesophageal reflux disease [Unknown]
